FAERS Safety Report 6861525-2 (Version None)
Quarter: 2010Q3

REPORT INFORMATION
  Report Type: 
  Country: None (occurrence: None)
  Receive Date: 20100720
  Receipt Date: 20100712
  Transmission Date: 20110219
  Serious: Yes (Other)
  Sender: FDA-Public Use
  Company Number: US-BRISTOL-MYERS SQUIBB COMPANY-15195118

PATIENT
  Age: 4 Year
  Sex: Male

DRUGS (6)
  1. CYCLOPHOSPHAMIDE [Suspect]
  2. PHENYTOIN [Suspect]
     Indication: CONVULSION PROPHYLAXIS
  3. CYCLOSPORINE [Suspect]
     Indication: IMMUNOSUPPRESSANT DRUG THERAPY
  4. PREDNISONE [Suspect]
     Indication: PROPHYLAXIS
  5. BUSULFAN [Suspect]
     Route: 042
  6. MESNA [Concomitant]
     Indication: PROPHYLAXIS

REACTIONS (2)
  - ATAXIA [None]
  - PNEUMONIA [None]
